FAERS Safety Report 7365679-3 (Version None)
Quarter: 2011Q1

REPORT INFORMATION
  Report Type: 
  Country: None (occurrence: None)
  Receive Date: 20110316
  Receipt Date: 20110316
  Transmission Date: 20110831
  Serious: No
  Sender: FDA-Public Use
  Company Number: None

PATIENT
  Age: 86 Year
  Sex: Male
  Weight: 89.8122 kg

DRUGS (3)
  1. AVELOX [Suspect]
     Indication: PNEUMONIA
     Dosage: INTRAVENOUS; 400.0
     Route: 042
     Dates: start: 20110302, end: 20110304
  2. MOXIFLOXACIN [Suspect]
     Indication: PNEUMONIA
     Dosage: INTRAVENOUS; 400.0
     Dates: start: 20110302, end: 20110304
  3. QUINOLONES INJECTIONS 400.0 [Suspect]
     Indication: PNEUMONIA
     Dosage: INTRAVENOUS; 400.0
     Route: 042
     Dates: start: 20110302, end: 20110304

REACTIONS (3)
  - ABNORMAL BEHAVIOUR [None]
  - CONFUSIONAL STATE [None]
  - HALLUCINATION [None]
